FAERS Safety Report 11043163 (Version 16)
Quarter: 2015Q4

REPORT INFORMATION
  Report Type: Report from Study
  Country: CA (occurrence: CA)
  Receive Date: 20150417
  Receipt Date: 20151217
  Transmission Date: 20160304
  Serious: Yes (Hospitalization, Other)
  Sender: FDA-Public Use
  Company Number: CA-ROCHE-1563562

PATIENT
  Age: 58 Year
  Sex: Female
  Weight: 48.5 kg

DRUGS (7)
  1. HYDROMORPHONE [Concomitant]
     Active Substance: HYDROMORPHONE
  2. AVASTIN [Suspect]
     Active Substance: BEVACIZUMAB
     Indication: OVARIAN CANCER
     Route: 042
     Dates: start: 20150324, end: 20150901
  3. LORAZEPAM. [Concomitant]
     Active Substance: LORAZEPAM
  4. PANTOPRAZOLE [Concomitant]
     Active Substance: PANTOPRAZOLE SODIUM
  5. AVASTIN [Suspect]
     Active Substance: BEVACIZUMAB
     Route: 042
     Dates: start: 20150610
  6. PREGABALIN. [Concomitant]
     Active Substance: PREGABALIN
  7. SENNA [Concomitant]
     Active Substance: SENNA LEAF\SENNOSIDES\SENNOSIDES A AND B

REACTIONS (31)
  - Dehydration [Unknown]
  - Chest discomfort [Unknown]
  - Fatigue [Unknown]
  - Red blood cell count decreased [Unknown]
  - Red cell distribution width increased [Unknown]
  - Tumour marker increased [Unknown]
  - Weight decreased [Not Recovered/Not Resolved]
  - Incorrect dose administered [Unknown]
  - Haemoglobin decreased [Unknown]
  - Haematocrit decreased [Unknown]
  - Blood pressure diastolic decreased [Unknown]
  - General physical health deterioration [Unknown]
  - Nephrolithiasis [Unknown]
  - Neutrophil count increased [Unknown]
  - Blood pressure increased [Unknown]
  - Quality of life decreased [Unknown]
  - Hot flush [Unknown]
  - Weight decreased [Unknown]
  - Blood creatinine decreased [Unknown]
  - Hypotonia [Unknown]
  - Bacterial infection [Unknown]
  - Oxygen saturation decreased [Unknown]
  - Incision site infection [Unknown]
  - Pyrexia [Unknown]
  - Viral infection [Not Recovered/Not Resolved]
  - Hepatic enzyme increased [Unknown]
  - Platelet count decreased [Unknown]
  - Protein urine [Unknown]
  - Off label use [Unknown]
  - Lymphocyte count decreased [Unknown]
  - Liver disorder [Unknown]

NARRATIVE: CASE EVENT DATE: 20150410
